FAERS Safety Report 11629907 (Version 2)
Quarter: 2015Q4

REPORT INFORMATION
  Report Type: Report from Study
  Country: US (occurrence: US)
  Receive Date: 20151014
  Receipt Date: 20151109
  Transmission Date: 20160304
  Serious: Yes (Hospitalization, Other)
  Sender: FDA-Public Use
  Company Number: US-GILEAD-2015-0176076

PATIENT
  Age: 18 Year
  Sex: Female

DRUGS (3)
  1. AZTREONAM LYSINE [Suspect]
     Active Substance: AZTREONAM LYSINE
     Indication: PSEUDOMONAS INFECTION
     Dosage: 75 MG, UNK
     Route: 055
     Dates: start: 20150818
  2. ZYVOX [Suspect]
     Active Substance: LINEZOLID
     Indication: INFECTION
     Dosage: UNK, 21 DAY COURSE
     Route: 065
     Dates: start: 2015, end: 2015
  3. AZTREONAM LYSINE [Suspect]
     Active Substance: AZTREONAM LYSINE
     Indication: CYSTIC FIBROSIS
     Dosage: 75 MG, UNK
     Route: 055
     Dates: start: 20150723

REACTIONS (2)
  - Pseudomonas infection [Unknown]
  - Infective pulmonary exacerbation of cystic fibrosis [Unknown]
